FAERS Safety Report 12620187 (Version 2)
Quarter: 2016Q3

REPORT INFORMATION
  Report Type: Spontaneous
  Country: US (occurrence: US)
  Receive Date: 20160803
  Receipt Date: 20160916
  Transmission Date: 20161109
  Serious: Yes (Other)
  Sender: FDA-Public Use
  Company Number: US-ASTRAZENECA-2016SE81312

PATIENT
  Age: 58 Year
  Sex: Male
  Weight: 158.8 kg

DRUGS (8)
  1. ROPINEROL [Concomitant]
     Indication: RESTLESS LEGS SYNDROME
     Route: 048
     Dates: start: 2014
  2. NITROGLYCERIN. [Concomitant]
     Active Substance: NITROGLYCERIN
     Indication: ANGINA PECTORIS
     Dosage: 0.4 MG 3 TIMES, EVERY 5 MINUTES
     Dates: start: 2011
  3. SYMBICORT [Suspect]
     Active Substance: BUDESONIDE\FORMOTEROL FUMARATE DIHYDRATE
     Indication: CHRONIC OBSTRUCTIVE PULMONARY DISEASE
     Dosage: 160/4.5 UG, 2 PUFFS TWICE DAILY
     Route: 055
     Dates: start: 2009
  4. OXYGEN. [Concomitant]
     Active Substance: OXYGEN
     Indication: ASTHMA
     Dosage: 2 L WHILE SLEEPING AND IF HAS EPISODE DURING THE DAY LIKE ASTHMA ATTACK CAN USE 2.5 L
     Route: 045
     Dates: start: 201507
  5. OXYCODONE [Concomitant]
     Active Substance: OXYCODONE
     Indication: PAIN
     Route: 048
  6. GENERIC FOR FLEXERIL [Concomitant]
     Indication: SPINAL DISORDER
     Dosage: THREE TIMES A DAY AS NEEDED
     Route: 048
  7. OXYGEN. [Concomitant]
     Active Substance: OXYGEN
     Indication: CHRONIC OBSTRUCTIVE PULMONARY DISEASE
     Dosage: 2 L WHILE SLEEPING AND IF HAS EPISODE DURING THE DAY LIKE ASTHMA ATTACK CAN USE 2.5 L
     Route: 045
     Dates: start: 201507
  8. VENTOLIN [Concomitant]
     Active Substance: ALBUTEROL SULFATE
     Indication: INHALATION THERAPY
     Dosage: 90 MCG 2 PUFFS 4 TIMES A DAY AS NEEDED OR MORE IF HAVING AN ASTHMA ATTACK
     Route: 055

REACTIONS (10)
  - Myocardial infarction [Not Recovered/Not Resolved]
  - Coronary artery occlusion [Not Recovered/Not Resolved]
  - Psoriatic arthropathy [Not Recovered/Not Resolved]
  - Intentional product misuse [Not Recovered/Not Resolved]
  - Angina pectoris [Not Recovered/Not Resolved]
  - Musculoskeletal discomfort [Not Recovered/Not Resolved]
  - Dyspnoea [Not Recovered/Not Resolved]
  - Device malfunction [Not Recovered/Not Resolved]
  - Off label use [Not Recovered/Not Resolved]
  - Drug dose omission [Not Recovered/Not Resolved]

NARRATIVE: CASE EVENT DATE: 2011
